FAERS Safety Report 4650752-0 (Version None)
Quarter: 2005Q2

REPORT INFORMATION
  Report Type: 
  Country: None (occurrence: None)
  Receive Date: 20050429
  Receipt Date: 20050420
  Transmission Date: 20051028
  Serious: Yes (Death)
  Sender: FDA-Public Use
  Company Number: HQWYE175821APR05

PATIENT
  Age: 66 Year
  Sex: Male

DRUGS (6)
  1. EFFEXOR XR [Suspect]
     Indication: DEPRESSION
     Dosage: SEE IMAGE
     Route: 048
     Dates: start: 20050406, end: 20050408
  2. EFFEXOR XR [Suspect]
     Indication: DEPRESSION
     Dosage: SEE IMAGE
     Route: 048
     Dates: start: 20050409, end: 20050411
  3. EFFEXOR XR [Suspect]
     Indication: DEPRESSION
     Dosage: SEE IMAGE
     Route: 048
     Dates: start: 20050412, end: 20050414
  4. LISINOPRIL [Concomitant]
  5. ZOLOFT [Concomitant]
  6. RISPERDAL [Concomitant]

REACTIONS (7)
  - CARDIOVASCULAR DISORDER [None]
  - DEATH OF SIBLING [None]
  - FALL [None]
  - MYOCARDIAL INFARCTION [None]
  - PULMONARY EMBOLISM [None]
  - SINUS TACHYCARDIA [None]
  - SUDDEN DEATH [None]
